FAERS Safety Report 4381963-X (Version None)
Quarter: 2004Q2

REPORT INFORMATION
  Report Type: 
  Country: None (occurrence: None)
  Receive Date: 20040615
  Receipt Date: 20040528
  Transmission Date: 20050107
  Serious: Yes (Hospitalization)
  Sender: FDA-Public Use
  Company Number: 2004216000JP

PATIENT
  Age: 40 Year
  Sex: Female

DRUGS (5)
  1. HALCION [Suspect]
     Dosage: ORAL
     Route: 048
  2. ALPRAZOLAM [Suspect]
     Dosage: ORAL
     Route: 048
  3. FLUNITRAZEPAM (FLUNITRAZEPAM) [Suspect]
     Dosage: ORAL
     Route: 048
  4. CHLORPROMAZINE HCL [Suspect]
     Dosage: ORAL
     Route: 048
  5. AMITRIPTYLINE HYDROCHLORIDE [Suspect]
     Dosage: ORAL
     Route: 048

REACTIONS (3)
  - COMA [None]
  - DRUG TOXICITY [None]
  - OVERDOSE [None]
